FAERS Safety Report 9468009 (Version 3)
Quarter: 2014Q1

REPORT INFORMATION
  Report Type: Report from Study
  Country: GR (occurrence: GR)
  Receive Date: 20130821
  Receipt Date: 20140115
  Transmission Date: 20141002
  Serious: Yes (Life-Threatening, Hospitalization)
  Sender: FDA-Public Use
  Company Number: GR-TEVA-426980USA

PATIENT
  Age: 78 Year
  Sex: Male
  Weight: 60 kg

DRUGS (17)
  1. BENDAMUSTIN [Suspect]
     Indication: CHRONIC LYMPHOCYTIC LEUKAEMIA
     Route: 042
     Dates: start: 20130711
  2. BENDAMUSTIN [Suspect]
     Dosage: REGIMEN #2
     Route: 042
     Dates: start: 20130809
  3. RITUXIMAB [Suspect]
     Indication: CHRONIC LYMPHOCYTIC LEUKAEMIA
     Dosage: ONCE EVERY 28 DAYS
     Route: 042
     Dates: start: 20130710
  4. RITUXIMAB [Suspect]
     Route: 042
     Dates: start: 20130808
  5. IBRUTINIB/PLACEBO [Suspect]
     Indication: CHRONIC LYMPHOCYTIC LEUKAEMIA
     Dosage: 420 MILLIGRAM DAILY; BLINDED STUDY MEDICATION
     Route: 048
     Dates: start: 20130711
  6. IBRUTINIB/PLACEBO [Suspect]
     Dosage: BLINDED STUDY MEDICATION
     Dates: start: 20130809
  7. LIPITOR [Concomitant]
     Indication: DYSLIPIDAEMIA
     Dosage: 10 MILLIGRAM DAILY;
     Route: 048
  8. APOTEL [Concomitant]
     Indication: PREMEDICATION
     Dosage: 33.3333 MILLIGRAM DAILY;
     Dates: start: 20130710
  9. FENISTIL [Concomitant]
     Indication: PREMEDICATION
     Dosage: .2667 MILLIGRAM DAILY;
     Route: 042
     Dates: start: 20130710
  10. ZANTAC [Concomitant]
     Indication: PREMEDICATION
     Dosage: 5 MILLIGRAM DAILY;
     Route: 042
  11. ONDANSETRON [Concomitant]
     Indication: PREMEDICATION
     Dosage: .2667 MILLIGRAM DAILY;
     Route: 042
     Dates: start: 20130711
  12. NORVASC [Concomitant]
     Indication: HYPERTENSION
     Dosage: 5 MILLIGRAM DAILY;
     Route: 048
  13. VALTREX [Concomitant]
     Dosage: 500 MILLIGRAM DAILY;
     Route: 048
     Dates: start: 20130713
  14. BACTRIMEL [Concomitant]
     Indication: PROPHYLACTIC CHEMOTHERAPY
     Route: 048
     Dates: start: 20130713
  15. ZURCAZOL [Concomitant]
     Indication: GASTROINTESTINAL DISORDER THERAPY
     Route: 048
     Dates: start: 20130713
  16. DUAGAN [Concomitant]
     Dosage: 1 DOSE
  17. INSULIN [Concomitant]
     Indication: TYPE 2 DIABETES MELLITUS
     Dosage: 1 DOSE
     Route: 058

REACTIONS (1)
  - Syncope [Recovered/Resolved]
